FAERS Safety Report 7529864-X (Version None)
Quarter: 2011Q2

REPORT INFORMATION
  Report Type: 
  Country: None (occurrence: None)
  Receive Date: 20110520
  Receipt Date: 20100625
  Transmission Date: 20111010
  Serious: Yes (Hospitalization)
  Sender: FDA-Public Use
  Company Number: 2010SP036197

PATIENT
  Sex: Female

DRUGS (1)
  1. FOLLISTIM AQ [Suspect]
     Indication: ASSISTED FERTILISATION
     Dosage: 300IU; SC
     Route: 058
     Dates: start: 20100528

REACTIONS (3)
  - ASCITES [None]
  - PLEURAL EFFUSION [None]
  - OVARIAN HYPERSTIMULATION SYNDROME [None]
